FAERS Safety Report 25915178 (Version 2)
Quarter: 2025Q4

REPORT INFORMATION
  Report Type: Report from Study
  Country: TR (occurrence: TR)
  Receive Date: 20251013
  Receipt Date: 20251208
  Transmission Date: 20260118
  Serious: Yes (Hospitalization, Other)
  Sender: PFIZER
  Company Number: TR-PFIZER INC-PV202500026645

PATIENT
  Age: 56 Year
  Sex: Male

DRUGS (7)
  1. ELRANATAMAB [Suspect]
     Active Substance: ELRANATAMAB
     Dosage: 12 MG
     Dates: start: 202305
  2. ELRANATAMAB [Suspect]
     Active Substance: ELRANATAMAB
     Dosage: 32 MG
     Dates: start: 202305
  3. ELRANATAMAB [Suspect]
     Active Substance: ELRANATAMAB
     Dosage: 76 MG
  4. ELRANATAMAB [Suspect]
     Active Substance: ELRANATAMAB
     Dosage: 76 MG EVERY T WO WEEKS
     Dates: start: 202403
  5. ELRANATAMAB [Suspect]
     Active Substance: ELRANATAMAB
     Dosage: 76 MG EVERY T WO WEEKS
     Dates: start: 202501, end: 202505
  6. LYOPHILIZED HUMAN IMMUNOGLOBULIN FOR INTRAVENOUS INJECTION [Concomitant]
     Dosage: 20 MG EVERY 28 DAYS
     Dates: start: 202501, end: 202505
  7. LYOPHILIZED HUMAN IMMUNOGLOBULIN FOR INTRAVENOUS INJECTION [Concomitant]
     Dosage: 20 MG EVERY 28 DAYS
     Dates: start: 202403

REACTIONS (12)
  - Pneumonia bacterial [Recovered/Resolved]
  - C-reactive protein increased [Recovered/Resolved]
  - Hypoxia [Unknown]
  - Pyrexia [Recovered/Resolved]
  - Dyspnoea [Recovered/Resolved]
  - Cough [Recovered/Resolved]
  - General physical health deterioration [Unknown]
  - Chest pain [Unknown]
  - Hypotension [Unknown]
  - Pleural effusion [Unknown]
  - Fatigue [Recovered/Resolved]
  - Vision blurred [Unknown]

NARRATIVE: CASE EVENT DATE: 20250601
